FAERS Safety Report 7481782-1 (Version None)
Quarter: 2011Q2

REPORT INFORMATION
  Report Type: 
  Country: None (occurrence: None)
  Receive Date: 20110516
  Receipt Date: 20110506
  Transmission Date: 20111010
  Serious: Yes (Death)
  Sender: FDA-Public Use
  Company Number: PL-GENZYME-CLOF-1001605

PATIENT
  Sex: Female
  Weight: 80 kg

DRUGS (1)
  1. EVOLTRA [Suspect]
     Indication: ACUTE MYELOID LEUKAEMIA
     Dosage: 40 MG/M2, UNK
     Route: 065
     Dates: start: 20110422, end: 20110426

REACTIONS (1)
  - TOXIC EPIDERMAL NECROLYSIS [None]
